FAERS Safety Report 5248109-7 (Version None)
Quarter: 2007Q1

REPORT INFORMATION
  Report Type: 
  Country: None (occurrence: None)
  Receive Date: 20070227
  Receipt Date: 20070223
  Transmission Date: 20070707
  Serious: Yes (Hospitalization)
  Sender: FDA-Public Use
  Company Number: IT-GLAXOSMITHKLINE-B0459841A

PATIENT
  Age: 39 Year
  Sex: Female

DRUGS (1)
  1. CLAVULIN [Suspect]
     Dosage: 825MG PER DAY
     Route: 048
     Dates: start: 20070219, end: 20070219

REACTIONS (2)
  - BLOOD PRESSURE DECREASED [None]
  - URTICARIA [None]
